FAERS Safety Report 16054805 (Version 1)
Quarter: 2019Q1

REPORT INFORMATION
  Report Type: Spontaneous
  Country: US (occurrence: US)
  Receive Date: 20190310
  Receipt Date: 20190310
  Transmission Date: 20190418
  Serious: No
  Sender: FDA-Public Use
  Company Number: US-JNJFOC-20190235960

PATIENT
  Sex: Female
  Weight: 63.96 kg

DRUGS (2)
  1. WOMENS ROGAINE UNSCENTED [Suspect]
     Active Substance: MINOXIDIL
     Route: 061
  2. WOMENS ROGAINE UNSCENTED [Suspect]
     Active Substance: MINOXIDIL
     Indication: ALOPECIA
     Dosage: LESS THAN HALF A CAPFUL ONCE DAILY, SOMETIMES TWICE
     Route: 061

REACTIONS (4)
  - Incorrect dose administered [Unknown]
  - Hair growth abnormal [Not Recovered/Not Resolved]
  - Device breakage [Unknown]
  - Inappropriate schedule of product administration [Unknown]
